FAERS Safety Report 8186303-6 (Version None)
Quarter: 2012Q1

REPORT INFORMATION
  Report Type: 
  Country: None (occurrence: None)
  Receive Date: 20120301
  Receipt Date: 20120210
  Transmission Date: 20120608
  Serious: Yes (Hospitalization)
  Sender: FDA-Public Use
  Company Number: 20120058

PATIENT
  Age: 90 Year
  Sex: Female

DRUGS (8)
  1. ATACAND [Concomitant]
  2. HYPERIUM (RILMENIDINE) [Concomitant]
  3. LEXOMIL (BROMAZEPAM) [Concomitant]
  4. XYZALL (LEVOCETIRIZINE DIHYDROCHLORIDE) [Concomitant]
  5. OMEPRAZOLE [Concomitant]
  6. ZOLPIDEM TARTRATE [Concomitant]
  7. VOLTAREN [Concomitant]
  8. VENOFER [Suspect]
     Indication: ANAEMIA
     Dosage: 300 MG INTRAVENOUS
     Route: 042
     Dates: start: 20110921, end: 20110921

REACTIONS (3)
  - THROMBOCYTOPENIA [None]
  - CONDITION AGGRAVATED [None]
  - BICYTOPENIA [None]
